FAERS Safety Report 4354239-4 (Version None)
Quarter: 2004Q2

REPORT INFORMATION
  Report Type: 
  Country: None (occurrence: None)
  Receive Date: 20040506
  Receipt Date: 20040423
  Transmission Date: 20050107
  Serious: Yes (Other)
  Sender: FDA-Public Use
  Company Number: IT-GLAXOSMITHKLINE-B0331578A

PATIENT
  Sex: Male

DRUGS (5)
  1. RANITIDINE [Suspect]
     Indication: GASTRODUODENITIS
     Dosage: 50MG TWICE PER DAY
     Route: 042
     Dates: start: 20040407, end: 20040407
  2. CIPROFLOXACIN [Concomitant]
  3. MESALAZINE [Concomitant]
  4. METHYLPREDNISOLONE [Concomitant]
  5. METRONIDAZOLE [Concomitant]

REACTIONS (4)
  - ERYTHEMA [None]
  - PILOERECTION [None]
  - RAYNAUD'S PHENOMENON [None]
  - SINUS TACHYCARDIA [None]
